FAERS Safety Report 17134221 (Version 2)
Quarter: 2019Q4

REPORT INFORMATION
  Report Type: Spontaneous
  Country: JP (occurrence: JP)
  Receive Date: 20191210
  Receipt Date: 20191210
  Transmission Date: 20200122
  Serious: Yes (Hospitalization)
  Sender: FDA-Public Use
  Company Number: JP-ROCHE-2459416

PATIENT
  Age: 74 Year
  Sex: Male

DRUGS (2)
  1. ACTEMRA [Concomitant]
     Active Substance: TOCILIZUMAB
     Route: 065
  2. VALIXA [Suspect]
     Active Substance: VALGANCICLOVIR
     Indication: CYTOMEGALOVIRUS INFECTION
     Route: 048

REACTIONS (1)
  - Urinary retention [Recovered/Resolved]
